FAERS Safety Report 8015859-9 (Version None)
Quarter: 2011Q4

REPORT INFORMATION
  Report Type: 
  Country: None (occurrence: None)
  Receive Date: 20111230
  Receipt Date: 20111221
  Transmission Date: 20120403
  Serious: Yes (Other)
  Sender: FDA-Public Use
  Company Number: US-ROCHE-803256

PATIENT
  Sex: Male
  Weight: 71.278 kg

DRUGS (1)
  1. ACCUTANE [Suspect]
     Indication: ACNE
     Route: 065
     Dates: start: 19931201, end: 19940401

REACTIONS (3)
  - CROHN'S DISEASE [None]
  - ANAL FISSURE [None]
  - INFLAMMATORY BOWEL DISEASE [None]
